FAERS Safety Report 22531378 (Version 1)
Quarter: 2023Q2

REPORT INFORMATION
  Report Type: Report from Study
  Country: CA (occurrence: CA)
  Receive Date: 20230607
  Receipt Date: 20230607
  Transmission Date: 20230722
  Serious: Yes (Disabling)
  Sender: FDA-Public Use
  Company Number: CA-ALNYLAM PHARMACEUTICALS, INC.-ALN-2023-002598

PATIENT

DRUGS (16)
  1. ONPATTRO [Suspect]
     Active Substance: PATISIRAN SODIUM
     Indication: Hereditary neuropathic amyloidosis
     Dosage: UNK
     Route: 065
     Dates: start: 20170102
  2. ONPATTRO [Suspect]
     Active Substance: PATISIRAN SODIUM
     Dosage: 0.3 MILLIGRAM/KILOGRAM, EVERY 3 WEEKS (Q3W)
     Route: 042
     Dates: start: 20220628
  3. ONPATTRO [Suspect]
     Active Substance: PATISIRAN SODIUM
     Dosage: 20.4 MILLIGRAM, Q3W
     Route: 042
     Dates: start: 20230531
  4. DIPHENHYDRAMINE [Concomitant]
     Active Substance: DIPHENHYDRAMINE
     Indication: Product used for unknown indication
     Dosage: 50 MILLIGRAM
     Route: 042
     Dates: start: 20220628
  5. DEXAMETHASONE [Concomitant]
     Active Substance: DEXAMETHASONE
     Indication: Product used for unknown indication
     Dosage: 5 MILLIGRAM
     Route: 042
     Dates: start: 20220628
  6. FAMOTIDINE [Concomitant]
     Active Substance: FAMOTIDINE
     Indication: Product used for unknown indication
     Dosage: 40 MILLIGRAM
     Route: 048
     Dates: start: 20220628
  7. ACETAMINOPHEN [Concomitant]
     Active Substance: ACETAMINOPHEN
     Indication: Product used for unknown indication
     Dosage: 500 MILLIGRAM
     Route: 048
     Dates: start: 20220628
  8. POLYETHYLENE GLYCOL 3350 [Concomitant]
     Active Substance: POLYETHYLENE GLYCOL 3350
     Indication: Product used for unknown indication
     Dosage: 1 DOSAGE FORM
     Route: 065
     Dates: start: 202008
  9. PROLIA [Concomitant]
     Active Substance: DENOSUMAB
     Indication: Product used for unknown indication
     Dosage: 60 MILLIGRAM
     Route: 065
     Dates: start: 2019
  10. NORTRIPTYLINE [Concomitant]
     Active Substance: NORTRIPTYLINE
     Indication: Product used for unknown indication
     Dosage: 25 MILLIGRAM
     Route: 065
     Dates: start: 2017
  11. OMEGA 3 [Concomitant]
     Active Substance: CAPSAICIN
     Indication: Product used for unknown indication
     Dosage: 900 MILLIGRAM
     Route: 065
     Dates: start: 2017
  12. CALCIUM [Concomitant]
     Active Substance: CALCIUM
     Indication: Product used for unknown indication
     Dosage: 600 MILLIGRAM
     Route: 065
     Dates: start: 2017
  13. VITAMIN D [Concomitant]
     Active Substance: VITAMIN D NOS
     Indication: Product used for unknown indication
     Dosage: 1800 INTERNATIONAL UNIT
     Route: 065
     Dates: start: 2017
  14. VITAMIN A [Concomitant]
     Active Substance: VITAMIN A
     Indication: Product used for unknown indication
     Dosage: UNK
     Route: 065
     Dates: start: 2017
  15. GABAPENTIN [Concomitant]
     Active Substance: GABAPENTIN
     Indication: Product used for unknown indication
     Dosage: 600 MILLIGRAM
     Route: 065
     Dates: start: 2012
  16. GABAPENTIN [Concomitant]
     Active Substance: GABAPENTIN
     Dosage: 900 MILLIGRAM
     Route: 065
     Dates: start: 2012

REACTIONS (2)
  - Disability [Unknown]
  - Ill-defined disorder [Unknown]
